FAERS Safety Report 4378166-1 (Version None)
Quarter: 2004Q2

REPORT INFORMATION
  Report Type: 
  Country: None (occurrence: None)
  Receive Date: 20040609
  Receipt Date: 20040520
  Transmission Date: 20050107
  Serious: Yes (Other)
  Sender: FDA-Public Use
  Company Number: USA040568168

PATIENT
  Sex: Female

DRUGS (2)
  1. EVISTA [Suspect]
     Indication: OSTEOPOROSIS
     Dates: start: 20030101, end: 20040518
  2. CALCIUM [Concomitant]

REACTIONS (7)
  - ANKLE FRACTURE [None]
  - BACK PAIN [None]
  - CONDITION AGGRAVATED [None]
  - DECREASED ACTIVITY [None]
  - DIFFICULTY IN WALKING [None]
  - OSTEOPOROSIS [None]
  - WEIGHT INCREASED [None]
